FAERS Safety Report 8227531-0 (Version None)
Quarter: 2012Q1

REPORT INFORMATION
  Report Type: 
  Country: None (occurrence: None)
  Receive Date: 20120322
  Receipt Date: 20120314
  Transmission Date: 20120608
  Serious: Yes (Other)
  Sender: FDA-Public Use
  Company Number: JP-ASTELLAS-2012JP002328

PATIENT
  Age: 52 Year
  Sex: Male

DRUGS (4)
  1. PROGRAF [Suspect]
     Indication: IMMUNOSUPPRESSANT DRUG THERAPY
     Route: 048
  2. PROGRAF [Suspect]
     Dosage: UNK
     Route: 048
     Dates: end: 20090201
  3. PROGRAF [Suspect]
     Route: 048
  4. PROGRAF [Suspect]
     Route: 048

REACTIONS (3)
  - GRAFT VERSUS HOST DISEASE [None]
  - DRUG INEFFECTIVE [None]
  - CYTOMEGALOVIRUS CHORIORETINITIS [None]
